FAERS Safety Report 10500949 (Version 1)
Quarter: 2014Q4

REPORT INFORMATION
  Report Type: Spontaneous
  Country: AU (occurrence: AU)
  Receive Date: 20141007
  Receipt Date: 20141007
  Transmission Date: 20150528
  Serious: Yes (Other)
  Sender: FDA-Public Use
  Company Number: AU-ROCHE-1469460

PATIENT
  Age: 73 Year
  Sex: Female

DRUGS (3)
  1. LUCENTIS [Suspect]
     Active Substance: RANIBIZUMAB
     Indication: OFF LABEL USE
     Route: 050
     Dates: start: 20140619, end: 20140619
  2. LUCENTIS [Suspect]
     Active Substance: RANIBIZUMAB
     Indication: AGE-RELATED MACULAR DEGENERATION
  3. LUCENTIS [Suspect]
     Active Substance: RANIBIZUMAB
     Indication: POLYPOIDAL CHOROIDAL VASCULOPATHY
     Route: 050
     Dates: start: 20110922, end: 20140826

REACTIONS (4)
  - Product use issue [Unknown]
  - Visual acuity reduced [Recovered/Resolved]
  - Subretinal fluid [Recovered/Resolved]
  - Polyp [Unknown]

NARRATIVE: CASE EVENT DATE: 20140619
